FAERS Safety Report 10953871 (Version 1)
Quarter: 2015Q1

REPORT INFORMATION
  Report Type: Spontaneous
  Country: US (occurrence: US)
  Receive Date: 20150325
  Receipt Date: 20150325
  Transmission Date: 20150721
  Serious: No
  Sender: FDA-Public Use
  Company Number: US-009507513-1503USA012241

PATIENT
  Weight: 136.5 kg

DRUGS (2)
  1. NEXPLANON [Suspect]
     Active Substance: ETONOGESTREL
     Dosage: LEFT ARM
     Route: 059
     Dates: start: 20150310
  2. IMPLANON [Suspect]
     Active Substance: ETONOGESTREL
     Indication: MENSTRUAL DISORDER
     Dosage: ROD IN THE LEFT ARM
     Route: 059
     Dates: start: 201201

REACTIONS (1)
  - Overdose [Unknown]

NARRATIVE: CASE EVENT DATE: 20150310
